FAERS Safety Report 4351466-7 (Version None)
Quarter: 2004Q2

REPORT INFORMATION
  Report Type: 
  Country: None (occurrence: None)
  Receive Date: 20040503
  Receipt Date: 20040426
  Transmission Date: 20050107
  Serious: Yes (Other)
  Sender: FDA-Public Use
  Company Number: US-BRISTOL-MYERS SQUIBB COMPANY-12571550

PATIENT
  Sex: Male

DRUGS (1)
  1. ERBITUX [Suspect]
     Indication: COLORECTAL CANCER
     Dosage: 5TH CYCLE
     Route: 042
     Dates: start: 20040426, end: 20040426

REACTIONS (3)
  - CHILLS [None]
  - DYSPNOEA [None]
  - FLUSHING [None]
